FAERS Safety Report 12440937 (Version 1)
Quarter: 2016Q2

REPORT INFORMATION
  Report Type: Spontaneous
  Country: IT (occurrence: IT)
  Receive Date: 20160607
  Receipt Date: 20160607
  Transmission Date: 20160815
  Serious: Yes (Other)
  Sender: FDA-Public Use
  Company Number: IT-BIOGEN-2016BI00218942

PATIENT
  Age: 45 Year

DRUGS (1)
  1. TECFIDERA [Suspect]
     Active Substance: DIMETHYL FUMARATE
     Indication: MULTIPLE SCLEROSIS
     Route: 048
     Dates: start: 20151123, end: 20160306

REACTIONS (1)
  - Superficial spreading melanoma stage IV [Not Recovered/Not Resolved]

NARRATIVE: CASE EVENT DATE: 20160301
